FAERS Safety Report 12707132 (Version 1)
Quarter: 2016Q3

REPORT INFORMATION
  Report Type: Spontaneous
  Country: US (occurrence: US)
  Receive Date: 20160901
  Receipt Date: 20160901
  Transmission Date: 20161109
  Serious: No
  Sender: FDA-Public Use
  Company Number: US-BAUSCH-BL-2015-026247

PATIENT
  Sex: Female

DRUGS (4)
  1. FOLIC ACID. [Concomitant]
     Active Substance: FOLIC ACID
     Indication: PRODUCT USED FOR UNKNOWN INDICATION
  2. COLAZAL [Suspect]
     Active Substance: BALSALAZIDE DISODIUM
     Indication: CROHN^S DISEASE
     Dosage: 5 CAPSULES IN THE MORNING AND 4 CAPSULES AT BEDTIME
     Route: 048
     Dates: end: 20151030
  3. COLAZAL [Suspect]
     Active Substance: BALSALAZIDE DISODIUM
     Dosage: 4 CAPSULES IN THE MORNING AND 3 CAPSULES AT BEDTIME
     Route: 048
     Dates: start: 20151031
  4. METHOTREXATE. [Concomitant]
     Active Substance: METHOTREXATE
     Indication: PRODUCT USED FOR UNKNOWN INDICATION

REACTIONS (4)
  - Overdose [Unknown]
  - Off label use [Unknown]
  - Abdominal pain upper [Unknown]
  - Frequent bowel movements [Unknown]

NARRATIVE: CASE EVENT DATE: 2015
